FAERS Safety Report 17676810 (Version 1)
Quarter: 2020Q2

REPORT INFORMATION
  Report Type: Spontaneous
  Country: IT (occurrence: IT)
  Receive Date: 20200416
  Receipt Date: 20200416
  Transmission Date: 20200714
  Serious: Yes (Disabling)
  Sender: FDA-Public Use
  Company Number: IT-MYLANLABS-2020M1037948

PATIENT
  Age: 69 Year
  Sex: Female
  Weight: 60 kg

DRUGS (6)
  1. LOBIVON [Concomitant]
     Active Substance: NEBIVOLOL HYDROCHLORIDE
     Dosage: 0.25 MILLIGRAM
  2. APLACTIN [Concomitant]
     Active Substance: PRAVASTATIN SODIUM
     Dosage: UNK
  3. NORMIX [Concomitant]
     Active Substance: RIFAXIMIN
     Dosage: UNK
  4. CARDIOASPIRIN [Concomitant]
     Active Substance: ASPIRIN
     Dosage: UNK
  5. MICARDIS [Concomitant]
     Active Substance: TELMISARTAN
     Dosage: UNK
  6. GABAPENTIN MYLAN GENERICS 300 MG CAPSULE RIGIDE [Suspect]
     Active Substance: GABAPENTIN
     Indication: ORTHOSTATIC TREMOR
     Dosage: 1800 MILLIGRAM, QD
     Route: 048
     Dates: start: 20190101

REACTIONS (2)
  - Dermatitis bullous [Not Recovered/Not Resolved]
  - Off label use [Not Recovered/Not Resolved]

NARRATIVE: CASE EVENT DATE: 20190401
